FAERS Safety Report 11285874 (Version 1)
Quarter: 2015Q3

REPORT INFORMATION
  Report Type: Report from Study
  Country: US (occurrence: US)
  Receive Date: 20150721
  Receipt Date: 20150721
  Transmission Date: 20151125
  Serious: Yes (Hospitalization)
  Sender: FDA-Public Use
  Company Number: PHEH2015US013362

PATIENT
  Age: 50 Year
  Sex: Female

DRUGS (1)
  1. TOBI [Suspect]
     Active Substance: TOBRAMYCIN
     Indication: CYSTIC FIBROSIS
     Dosage: 300MG/5ML, BID
     Route: 055

REACTIONS (2)
  - Condition aggravated [Recovered/Resolved]
  - Cystic fibrosis [Recovered/Resolved]

NARRATIVE: CASE EVENT DATE: 20150529
